FAERS Safety Report 8202497-8 (Version None)
Quarter: 2012Q1

REPORT INFORMATION
  Report Type: 
  Country: None (occurrence: None)
  Receive Date: 20120312
  Receipt Date: 20120305
  Transmission Date: 20120608
  Serious: Yes (Other)
  Sender: FDA-Public Use
  Company Number: FR-JNJFOC-20120303111

PATIENT
  Age: 2 Day
  Sex: Male

DRUGS (1)
  1. ACETAMINOPHEN AND TRAMADOL HCL [Suspect]
     Indication: FOETAL EXPOSURE DURING PREGNANCY
     Dosage: 12 PILLS A DAY
     Route: 015

REACTIONS (2)
  - AGITATION [None]
  - WITHDRAWAL SYNDROME [None]
